FAERS Safety Report 8030806-1 (Version None)
Quarter: 2012Q1

REPORT INFORMATION
  Report Type: 
  Country: None (occurrence: None)
  Receive Date: 20120109
  Receipt Date: 20120103
  Transmission Date: 20120608
  Serious: Yes (Hospitalization)
  Sender: FDA-Public Use
  Company Number: FR-PFIZER INC-2012000582

PATIENT
  Age: 44 Year
  Sex: Male

DRUGS (1)
  1. PIPERACILLIN AND TAZOBACTAM [Suspect]
     Indication: LUNG DISORDER
     Dosage: UNK
     Dates: start: 20110804, end: 20110828

REACTIONS (3)
  - PYREXIA [None]
  - PARAESTHESIA [None]
  - AGRANULOCYTOSIS [None]
